FAERS Safety Report 10236430 (Version 5)
Quarter: 2014Q3

REPORT INFORMATION
  Report Type: Report from Study
  Country: AR (occurrence: AR)
  Receive Date: 20140613
  Receipt Date: 20140819
  Transmission Date: 20150326
  Serious: Yes (Hospitalization)
  Sender: FDA-Public Use
  Company Number: AR-US-EMD SERONO, INC.-7283565

PATIENT
  Age: 48 Year
  Sex: Female

DRUGS (2)
  1. REBIF [Suspect]
     Active Substance: INTERFERON BETA-1A
     Indication: MULTIPLE SCLEROSIS
     Dosage: NEW FORMULATION - APPLICATOR
     Dates: start: 20080602, end: 20121002
  2. REBIF [Suspect]
     Active Substance: INTERFERON BETA-1A
     Dosage: NEW FORMULATION - REBIJECT II
     Dates: start: 20140109

REACTIONS (13)
  - Decreased appetite [Not Recovered/Not Resolved]
  - Blister infected [Not Recovered/Not Resolved]
  - Ulcer [Not Recovered/Not Resolved]
  - Drug dose omission [Unknown]
  - Eating disorder [Unknown]
  - Fluid intake reduced [Unknown]
  - Gait disturbance [Not Recovered/Not Resolved]
  - Hyporesponsive to stimuli [Not Recovered/Not Resolved]
  - Injection site reaction [Not Recovered/Not Resolved]
  - Anaemia [Unknown]
  - Urinary tract infection [Unknown]
  - Urinary retention [Recovering/Resolving]
  - Fall [Recovered/Resolved]

NARRATIVE: CASE EVENT DATE: 201311
